FAERS Safety Report 6915816-7 (Version None)
Quarter: 2010Q3

REPORT INFORMATION
  Report Type: 
  Country: None (occurrence: None)
  Receive Date: 20100810
  Receipt Date: 20100513
  Transmission Date: 20110219
  Serious: No
  Sender: FDA-Public Use
  Company Number: A0857330A

PATIENT
  Age: 72 Year
  Sex: Female
  Weight: 71.4 kg

DRUGS (5)
  1. PAXIL [Suspect]
     Dosage: 40MG PER DAY
     Route: 065
     Dates: start: 20091110
  2. ZYPREXA [Suspect]
     Indication: PRODUCT USED FOR UNKNOWN INDICATION
     Dosage: 2.5MG UNKNOWN
     Route: 065
  3. METFORMIN HCL [Concomitant]
     Dosage: 500MG TWICE PER DAY
     Route: 065
     Dates: start: 20100330
  4. DALMANE [Concomitant]
     Route: 065
  5. KLONOPIN [Concomitant]
     Dosage: 1MG AS REQUIRED
     Route: 065

REACTIONS (3)
  - SEDATION [None]
  - WEIGHT DECREASED [None]
  - WEIGHT INCREASED [None]
